FAERS Safety Report 8272026-1 (Version None)
Quarter: 2012Q2

REPORT INFORMATION
  Report Type: 
  Country: None (occurrence: None)
  Receive Date: 20120410
  Receipt Date: 20120405
  Transmission Date: 20120825
  Serious: Yes (Other)
  Sender: FDA-Public Use
  Company Number: AU-JNJFOC-20120213031

PATIENT
  Sex: Female

DRUGS (4)
  1. SIMPONI [Suspect]
     Indication: ANKYLOSING SPONDYLITIS
     Route: 058
     Dates: start: 20120312, end: 20120327
  2. KETOPROFEN [Concomitant]
     Indication: ANKYLOSING SPONDYLITIS
     Dates: start: 20111115, end: 20120327
  3. PANTOPRAZOLE [Concomitant]
     Indication: GASTROOESOPHAGEAL REFLUX DISEASE
     Dates: start: 20111115, end: 20120327
  4. MOBIC [Concomitant]
     Indication: ANKYLOSING SPONDYLITIS
     Dates: start: 20111111, end: 20120327

REACTIONS (6)
  - INJECTION SITE HAEMATOMA [None]
  - COUGH [None]
  - DIARRHOEA [None]
  - THERAPEUTIC RESPONSE DECREASED [None]
  - CONTUSION [None]
  - BLOOD URINE PRESENT [None]
